FAERS Safety Report 8489460-7 (Version None)
Quarter: 2012Q3

REPORT INFORMATION
  Report Type: 
  Country: None (occurrence: None)
  Receive Date: 20120705
  Receipt Date: 20120312
  Transmission Date: 20120928
  Serious: No
  Sender: FDA-Public Use
  Company Number: US-ASTRAZENECA-2012SE16911

PATIENT
  Age: 51 Year
  Sex: Female
  Weight: 108.9 kg

DRUGS (5)
  1. MAOI [Concomitant]
  2. SEROQUEL XR [Suspect]
     Indication: DEPRESSION
     Route: 048
  3. SEROQUEL XR [Suspect]
     Indication: DEPRESSED MOOD
     Route: 048
  4. NARDIL [Concomitant]
  5. SYNTHROID [Concomitant]

REACTIONS (2)
  - OBSESSIVE-COMPULSIVE DISORDER [None]
  - HYPERSOMNIA [None]
